FAERS Safety Report 7835082-8 (Version None)
Quarter: 2011Q4

REPORT INFORMATION
  Report Type: 
  Country: None (occurrence: None)
  Receive Date: 20111020
  Receipt Date: 20110923
  Transmission Date: 20120403
  Serious: Yes (Other)
  Sender: FDA-Public Use
  Company Number: GER/UKI/11/0021330

PATIENT
  Age: 20 Year
  Sex: Male

DRUGS (2)
  1. QUINIDINE (QUINIDINE) [Concomitant]
  2. FLUOXETINE HYDROCHLORIDE [Suspect]
     Indication: MYASTHENIC SYNDROME
     Dosage: 60 MG, 1 IN 1 D

REACTIONS (2)
  - DRUG EFFECT DECREASED [None]
  - RESPIRATORY DISORDER [None]
